FAERS Safety Report 16048662 (Version 6)
Quarter: 2019Q2

REPORT INFORMATION
  Report Type: Spontaneous
  Country: US (occurrence: US)
  Receive Date: 20190307
  Receipt Date: 20190625
  Transmission Date: 20190711
  Serious: No
  Sender: FDA-Public Use
  Company Number: US-SA-2019SA062514

PATIENT
  Age: 88 Year
  Sex: Female

DRUGS (2)
  1. LANTUS SOLOSTAR [Suspect]
     Active Substance: INSULIN GLARGINE
     Indication: DIABETES MELLITUS
     Dosage: 24 U, HS,DAILY AT BEDTIME
     Route: 065
  2. INSULIN LISPRO [Suspect]
     Active Substance: INSULIN LISPRO
     Dosage: 6 UNITS IN THE MORNING, 7 UNITS AT NOON, AND 14 UNITS AT SUPPERTIME
     Route: 065

REACTIONS (3)
  - Blood glucose decreased [Unknown]
  - Fatigue [Unknown]
  - Device operational issue [Unknown]
